FAERS Safety Report 6585848-X (Version None)
Quarter: 2010Q1

REPORT INFORMATION
  Report Type: 
  Country: None (occurrence: None)
  Receive Date: 20100217
  Receipt Date: 20100204
  Transmission Date: 20100710
  Serious: Yes (Other)
  Sender: FDA-Public Use
  Company Number: PHHY2010GB07012

PATIENT
  Sex: Female

DRUGS (2)
  1. DIOVAN [Suspect]
     Indication: HYPERTENSION
     Dosage: 40 MG PER DAY
  2. DIOVAN [Suspect]
     Dosage: 80 MG PER DAY

REACTIONS (4)
  - DISORIENTATION [None]
  - LIMB DISCOMFORT [None]
  - MYALGIA [None]
  - OEDEMA PERIPHERAL [None]
